FAERS Safety Report 12691926 (Version 1)
Quarter: 2016Q3

REPORT INFORMATION
  Report Type: Report from Study
  Country: MX (occurrence: MX)
  Receive Date: 20160827
  Receipt Date: 20160827
  Transmission Date: 20161109
  Serious: Yes (Death, Other)
  Sender: FDA-Public Use
  Company Number: MX-AMGEN-MEXSL2016111999

PATIENT
  Age: 72 Year
  Sex: Male
  Weight: 67.5 kg

DRUGS (1)
  1. VECTIBIX [Suspect]
     Active Substance: PANITUMUMAB
     Indication: COLON CANCER METASTATIC
     Dosage: 400 MG, EVERY 15 DAYS
     Route: 042
     Dates: start: 20160701

REACTIONS (1)
  - Death [Fatal]

NARRATIVE: CASE EVENT DATE: 20160816
